FAERS Safety Report 21637939 (Version 5)
Quarter: 2022Q4

REPORT INFORMATION
  Report Type: Report from Study
  Country: DE (occurrence: DE)
  Receive Date: 20221124
  Receipt Date: 20221212
  Transmission Date: 20230112
  Serious: Yes (Death, Life-Threatening, Hospitalization, Disabling, Other)
  Sender: FDA-Public Use
  Company Number: DE-BRISTOL-MYERS SQUIBB COMPANY-2022-074960

PATIENT
  Age: 72 Year
  Sex: Male
  Weight: 98 kg

DRUGS (9)
  1. POMALIDOMIDE [Suspect]
     Active Substance: POMALIDOMIDE
     Indication: Plasma cell myeloma
     Dosage: DAY 1-21
     Route: 048
     Dates: start: 20211012, end: 20220704
  2. DEXAMETHASONE [Suspect]
     Active Substance: DEXAMETHASONE
     Indication: Plasma cell myeloma
     Dosage: DAY 1+8+15+22
     Route: 048
     Dates: start: 20211012, end: 20220703
  3. IXAZOMIB [Suspect]
     Active Substance: IXAZOMIB
     Indication: Plasma cell myeloma
     Dosage: DAY 1+8+15
     Route: 048
     Dates: start: 20211012, end: 20220703
  4. CYCLOPHOSPHAMIDE [Suspect]
     Active Substance: CYCLOPHOSPHAMIDE
     Indication: Plasma cell myeloma
     Dosage: DAY 1-21
     Route: 048
     Dates: start: 20220518, end: 20220704
  5. SULFAMETHOXAZOLE\TRIMETHOPRIM [Concomitant]
     Active Substance: SULFAMETHOXAZOLE\TRIMETHOPRIM
     Indication: Prophylaxis
     Route: 048
     Dates: start: 2017
  6. XARELTO [Concomitant]
     Active Substance: RIVAROXABAN
     Indication: Prophylaxis
     Dosage: 1
     Route: 048
     Dates: start: 2017
  7. TAMSULOSIN [Concomitant]
     Active Substance: TAMSULOSIN
     Indication: Benign prostatic hyperplasia
     Dosage: 1
     Route: 048
     Dates: start: 2017
  8. BISOPROLOL [Concomitant]
     Active Substance: BISOPROLOL
     Indication: Hypertonia
     Route: 048
  9. ZOMETA [Concomitant]
     Active Substance: ZOLEDRONIC ACID
     Indication: Prophylaxis
     Dates: start: 2017

REACTIONS (2)
  - COVID-19 pneumonia [Fatal]
  - SARS-CoV-2 sepsis [Fatal]

NARRATIVE: CASE EVENT DATE: 20220705
